FAERS Safety Report 6195037-9 (Version None)
Quarter: 2009Q2

REPORT INFORMATION
  Report Type: 
  Country: None (occurrence: None)
  Receive Date: 20090519
  Receipt Date: 20090511
  Transmission Date: 20091009
  Serious: Yes (Hospitalization)
  Sender: FDA-Public Use
  Company Number: D0061599A

PATIENT
  Age: 89 Year
  Sex: Female
  Weight: 58.2 kg

DRUGS (13)
  1. ZINNAT [Suspect]
     Indication: DIVERTICULITIS
     Dosage: 250MG TWICE PER DAY
     Route: 048
     Dates: start: 20090304, end: 20090314
  2. CIPROBAY [Suspect]
     Indication: BACTERIAL INFECTION
     Dosage: 250MG TWICE PER DAY
     Route: 048
     Dates: start: 20090220, end: 20090304
  3. ROCEPHIN [Suspect]
     Indication: BACTERIAL INFECTION
     Dosage: 1000MG PER DAY
     Route: 042
     Dates: start: 20090220, end: 20090304
  4. HYDROCHLOROTHIAZIDE [Suspect]
     Indication: HYPERTENSION
     Dosage: 12.5MG PER DAY
     Route: 048
     Dates: start: 20090220, end: 20090325
  5. AMLODIPINE [Concomitant]
     Indication: HYPERTENSION
     Dosage: 10MG PER DAY
     Route: 048
     Dates: start: 20090220
  6. ASPIRIN [Concomitant]
     Indication: CARDIOVASCULAR EVENT PROPHYLAXIS
     Dosage: 100MG PER DAY
     Route: 048
     Dates: start: 20090225
  7. FOLSAN [Concomitant]
     Dosage: 5MG PER DAY
     Route: 048
     Dates: start: 20090304
  8. METOCLOPRAMIDE [Concomitant]
     Dosage: 2.5MG THREE TIMES PER DAY
     Route: 048
     Dates: start: 20090217, end: 20090320
  9. EMBOLEX [Concomitant]
     Dosage: .5ML PER DAY
     Route: 058
     Dates: start: 20090201
  10. PANTOZOL [Concomitant]
     Dosage: 40MG PER DAY
     Route: 048
     Dates: start: 20090217
  11. RAMIPRIL [Concomitant]
     Indication: HYPERTENSION
     Dosage: 2.5MG PER DAY
     Route: 048
     Dates: start: 20090217
  12. VITAMIN B1 + VITAMIN B6 [Concomitant]
     Route: 048
     Dates: start: 20090304
  13. TORSEMIDE [Concomitant]
     Route: 065

REACTIONS (7)
  - ALTERED STATE OF CONSCIOUSNESS [None]
  - BLOOD CREATINE INCREASED [None]
  - DEHYDRATION [None]
  - DIARRHOEA [None]
  - FATIGUE [None]
  - GASTROENTERITIS CLOSTRIDIAL [None]
  - HYPOKALAEMIA [None]
